FAERS Safety Report 21860570 (Version 1)
Quarter: 2023Q1

REPORT INFORMATION
  Report Type: Spontaneous
  Country: US (occurrence: None)
  Receive Date: 20230113
  Receipt Date: 20230113
  Transmission Date: 20230417
  Serious: Yes (Hospitalization)
  Sender: FDA-Public Use
  Company Number: None

PATIENT
  Sex: Female
  Weight: 76.6 kg

DRUGS (23)
  1. EPCLUSA [Suspect]
     Active Substance: SOFOSBUVIR\VELPATASVIR
     Indication: Hepatitis C
     Dosage: OTHER QUANTITY : 400-100 MG TABLET;?FREQUENCY : DAILY;?
     Route: 048
     Dates: start: 20171215, end: 20180309
  2. LEVOTHYROXINE [Concomitant]
     Active Substance: LEVOTHYROXINE
  3. PREGABALIN [Concomitant]
     Active Substance: PREGABALIN
  4. MIRABEGRON [Concomitant]
     Active Substance: MIRABEGRON
  5. CYCLOSPORINE [Concomitant]
     Active Substance: CYCLOSPORINE
  6. PREDNISONE [Concomitant]
     Active Substance: PREDNISONE
  7. MYFORTIC [Concomitant]
     Active Substance: MYCOPHENOLATE SODIUM
  8. SEPTRA [Concomitant]
     Active Substance: SULFAMETHOXAZOLE\TRIMETHOPRIM
  9. VALGANCICLOVIR [Concomitant]
     Active Substance: VALGANCICLOVIR
  10. NYSTATIN [Concomitant]
     Active Substance: NYSTATIN
  11. FUROSEMIDE [Concomitant]
     Active Substance: FUROSEMIDE
  12. HUMALOG [Concomitant]
     Active Substance: INSULIN LISPRO
  13. NOVOLIN NOS [Concomitant]
     Active Substance: INSULIN HUMAN
  14. ALENDRONATE [Concomitant]
     Active Substance: ALENDRONATE SODIUM
  15. CALCIUM CARBONATE [Concomitant]
     Active Substance: CALCIUM CARBONATE
  16. VITAMIN D [Concomitant]
     Active Substance: VITAMIN D NOS
  17. FERROUS GLUCONATE [Concomitant]
     Active Substance: FERROUS GLUCONATE
  18. MAGNESIUM OXIDE [Concomitant]
     Active Substance: MAGNESIUM OXIDE
  19. HYDROMORPHONE [Concomitant]
     Active Substance: HYDROMORPHONE
  20. SENNA [Concomitant]
     Active Substance: SENNA LEAF\SENNOSIDES\SENNOSIDES A AND B
  21. HEPARIN [Concomitant]
     Active Substance: HEPARIN SODIUM
  22. ACETAMINOPHEN [Concomitant]
     Active Substance: ACETAMINOPHEN
  23. RUB A535 [Concomitant]

REACTIONS (1)
  - Pulmonary embolism [None]

NARRATIVE: CASE EVENT DATE: 20180110
